FAERS Safety Report 15309585 (Version 1)
Quarter: 2018Q3

REPORT INFORMATION
  Report Type: Spontaneous
  Country: US (occurrence: US)
  Receive Date: 20180812
  Receipt Date: 20180812
  Transmission Date: 20181010
  Serious: Yes (Life-Threatening, Disabling)
  Sender: FDA-Public Use
  Company Number: None

PATIENT
  Age: 37 Year
  Sex: Male
  Weight: 93.15 kg

DRUGS (7)
  1. VALIUM [Concomitant]
     Active Substance: DIAZEPAM
  2. TESTOSTERONE. [Concomitant]
     Active Substance: TESTOSTERONE
  3. BUPROPION. [Concomitant]
     Active Substance: BUPROPION
  4. ASPIRINE [Concomitant]
     Active Substance: ASPIRIN
  5. DEEP SLEEP HERBAL MEDICINE [Concomitant]
  6. FLUPHENAZINE 2.5MG NOC:0027 ?1799?01 AQR:00 IMPRINT :LCD FILM 1789 [Suspect]
     Active Substance: FLUPHENAZINE
     Indication: ANXIETY
     Dosage: ?          QUANTITY:1 TABLET(S);?
     Route: 048
     Dates: start: 20180806, end: 20180812
  7. SAINT JOSHEP ROOT [Concomitant]

REACTIONS (5)
  - Decreased appetite [None]
  - Anxiety [None]
  - Insomnia [None]
  - Musculoskeletal stiffness [None]
  - Muscle disorder [None]

NARRATIVE: CASE EVENT DATE: 20180806
